FAERS Safety Report 7450220-7 (Version None)
Quarter: 2011Q2

REPORT INFORMATION
  Report Type: 
  Country: None (occurrence: None)
  Receive Date: 20110422
  Receipt Date: 20110412
  Transmission Date: 20111010
  Serious: Yes (Other)
  Sender: FDA-Public Use
  Company Number: 2011AP000721

PATIENT
  Age: 76 Year
  Sex: Male

DRUGS (1)
  1. CITALOPRAM HYDROBROMIDE [Suspect]
     Indication: PRODUCT USED FOR UNKNOWN INDICATION
     Dosage: 40 MG;QD

REACTIONS (4)
  - WOUND HAEMORRHAGE [None]
  - CONTUSION [None]
  - LACERATION [None]
  - COAGULOPATHY [None]
